FAERS Safety Report 14019676 (Version 1)
Quarter: 2017Q3

REPORT INFORMATION
  Report Type: Spontaneous
  Country: US (occurrence: US)
  Receive Date: 20170928
  Receipt Date: 20170928
  Transmission Date: 20171128
  Serious: Yes (Other)
  Sender: FDA-Public Use
  Company Number: US-PFIZER INC-2017415453

PATIENT
  Sex: Female

DRUGS (2)
  1. PRISTIQ EXTENDED-RELEASE [Suspect]
     Active Substance: DESVENLAFAXINE SUCCINATE
     Dosage: 100 MG, UNK
     Dates: start: 201702, end: 201709
  2. PRISTIQ EXTENDED-RELEASE [Suspect]
     Active Substance: DESVENLAFAXINE SUCCINATE
     Dosage: USED TO BE ON 50MG
     Dates: start: 2015, end: 201702

REACTIONS (6)
  - Headache [Unknown]
  - Anger [Unknown]
  - Hallucination [Unknown]
  - Paraesthesia [Unknown]
  - Suicidal ideation [Unknown]
  - Irritability [Unknown]

NARRATIVE: CASE EVENT DATE: 201709
